FAERS Safety Report 21103376 (Version 2)
Quarter: 2023Q1

REPORT INFORMATION
  Report Type: Spontaneous
  Country: FR (occurrence: FR)
  Receive Date: 20220720
  Receipt Date: 20230211
  Transmission Date: 20230418
  Serious: Yes (Death, Other)
  Sender: FDA-Public Use
  Company Number: FR-GW PHARMA-2022-FR-021791

PATIENT
  Age: 13 Year
  Sex: Female
  Weight: 40 kg

DRUGS (15)
  1. MELATONIN [Suspect]
     Active Substance: MELATONIN
     Indication: Sleep disorder
     Dosage: 4 MILLIGRAM
     Route: 065
     Dates: start: 2021
  2. CANNABIDIOL [Suspect]
     Active Substance: CANNABIDIOL
     Indication: Lennox-Gastaut syndrome
     Dosage: 4 MILLILITER, ONCE A DAY
     Route: 065
     Dates: start: 20211118
  3. CANNABIDIOL [Suspect]
     Active Substance: CANNABIDIOL
     Dosage: 10 MILLIGRAM
     Route: 065
     Dates: start: 20211118
  4. CANNABIDIOL [Suspect]
     Active Substance: CANNABIDIOL
     Dosage: 5 MILLIGRAM/KILOGRAM
     Route: 065
     Dates: start: 20211118, end: 20220119
  5. CANNABIDIOL [Suspect]
     Active Substance: CANNABIDIOL
     Dosage: 7.5 MILLIGRAM/KILOGRAM
     Route: 065
     Dates: start: 20220120, end: 20220220
  6. CANNABIDIOL [Suspect]
     Active Substance: CANNABIDIOL
     Dosage: 10 MILLIGRAM/KILOGRAM (10 MILLIGRAM/KILOGRAM, 2X2 ML)
     Route: 065
     Dates: start: 20220120, end: 20220311
  7. INOVELON [Suspect]
     Active Substance: RUFINAMIDE
     Indication: Epilepsy
     Dosage: 16 MILLILITER, ONCE A DAY (16 MILLILITER/DAY)
     Route: 065
     Dates: start: 201407
  8. INOVELON [Suspect]
     Active Substance: RUFINAMIDE
     Indication: Lennox-Gastaut syndrome
  9. LAMICTAL [Suspect]
     Active Substance: LAMOTRIGINE
     Indication: Epilepsy
     Dosage: 200 MILLIGRAM, ONCE A DAY (200 MILLIGRAM/DAY)
     Route: 065
     Dates: start: 201312
  10. LAMICTAL [Suspect]
     Active Substance: LAMOTRIGINE
     Indication: Lennox-Gastaut syndrome
  11. VALPROATE SODIUM [Suspect]
     Active Substance: VALPROATE SODIUM
     Indication: Epilepsy
     Dosage: 600 MILLIGRAM, ONCE A DAY (600 MILLIGRAM/DAY)
     Route: 065
     Dates: start: 201309
  12. VALPROATE SODIUM [Suspect]
     Active Substance: VALPROATE SODIUM
     Indication: Lennox-Gastaut syndrome
  13. RIVOTRIL [Suspect]
     Active Substance: CLONAZEPAM
     Indication: Epilepsy
     Dosage: 7 GRAM (7 GRAM EVERY EVENING)
     Route: 065
     Dates: start: 201407
  14. RIVOTRIL [Suspect]
     Active Substance: CLONAZEPAM
     Indication: Lennox-Gastaut syndrome
  15. MIDAZOLAM HYDROCHLORIDE [Concomitant]
     Active Substance: MIDAZOLAM HYDROCHLORIDE
     Indication: Lennox-Gastaut syndrome
     Dosage: EVERY WEEK
     Route: 065

REACTIONS (4)
  - Sudden unexplained death in epilepsy [Fatal]
  - Epilepsy [Unknown]
  - Drug ineffective [Unknown]
  - Off label use [Unknown]

NARRATIVE: CASE EVENT DATE: 20220311
